FAERS Safety Report 8163104-6 (Version None)
Quarter: 2012Q1

REPORT INFORMATION
  Report Type: 
  Country: None (occurrence: None)
  Receive Date: 20120224
  Receipt Date: 20120216
  Transmission Date: 20120608
  Serious: Yes (Hospitalization)
  Sender: FDA-Public Use
  Company Number: DE-GLAXOSMITHKLINE-D0074279A

PATIENT
  Sex: Male
  Weight: 67 kg

DRUGS (7)
  1. DEKRISTOL [Concomitant]
     Dosage: 20000IU WEEKLY
     Route: 048
  2. VOTRIENT [Suspect]
     Indication: METASTATIC RENAL CELL CARCINOMA
     Dosage: 400MG PER DAY
     Route: 048
     Dates: start: 20111023, end: 20111218
  3. ASPIRIN [Concomitant]
     Dosage: 100MG PER DAY
     Route: 048
  4. AMLODIPINE [Concomitant]
     Dosage: 5MG PER DAY
     Route: 048
  5. DIOVAN [Concomitant]
     Dosage: 160MG TWICE PER DAY
     Route: 048
  6. BISOPROLOL FUMARATE [Concomitant]
     Dosage: 2.5MG PER DAY
     Route: 048
  7. SIMVASTATIN [Concomitant]
     Dosage: 20MG PER DAY
     Route: 048

REACTIONS (9)
  - CHOKING SENSATION [None]
  - CHEST DISCOMFORT [None]
  - CARDIOVASCULAR DISORDER [None]
  - FEAR OF DEATH [None]
  - TACHYCARDIA [None]
  - HYPOTENSION [None]
  - HYPERTENSIVE CRISIS [None]
  - DYSPNOEA [None]
  - HYPERHIDROSIS [None]
